FAERS Safety Report 4582117-4 (Version None)
Quarter: 2005Q1

REPORT INFORMATION
  Report Type: 
  Country: None (occurrence: None)
  Receive Date: 20050119
  Receipt Date: 20040107
  Transmission Date: 20050727
  Serious: Yes (Life-Threatening, Hospitalization)
  Sender: FDA-Public Use
  Company Number: A03200400037

PATIENT
  Age: 80 Year
  Sex: Male
  Weight: 74.8435 kg

DRUGS (2)
  1. PLAVIX [Suspect]
     Indication: TRANSIENT ISCHAEMIC ATTACK
     Dates: start: 20020828, end: 20031212
  2. ACETYLSALICYLIC ACID SRT [Concomitant]

REACTIONS (1)
  - SUBDURAL HAEMORRHAGE [None]
